FAERS Safety Report 21215349 (Version 4)
Quarter: 2022Q4

REPORT INFORMATION
  Report Type: Spontaneous
  Country: IL (occurrence: IL)
  Receive Date: 20220816
  Receipt Date: 20221007
  Transmission Date: 20230113
  Serious: Yes (Death, Hospitalization, Other)
  Sender: FDA-Public Use
  Company Number: IL-009507513-2208ISR004712

PATIENT
  Age: 51 Year
  Sex: Female

DRUGS (17)
  1. BRIDION [Suspect]
     Active Substance: SUGAMMADEX
     Dosage: 200 MILLIGRAM, ONCE
     Dates: start: 20220807, end: 20220807
  2. ROCURONIUM [Suspect]
     Active Substance: ROCURONIUM BROMIDE
     Dosage: 50 MILLIGRAM, ONCE
     Dates: start: 20220807, end: 20220807
  3. MORPHINE [Concomitant]
     Active Substance: MORPHINE
     Indication: Analgesic therapy
     Dosage: 20 MILLIGRAM
     Route: 042
     Dates: start: 20220807, end: 20220807
  4. FENTANYL [Concomitant]
     Active Substance: FENTANYL
     Indication: Analgesic therapy
     Dosage: 300 MILLIGRAM
     Dates: start: 20220807, end: 20220807
  5. TRAMADOL [Concomitant]
     Active Substance: TRAMADOL
     Indication: Analgesic therapy
     Dosage: 100 MILLIGRAM, ONCE
     Route: 042
     Dates: start: 20220807, end: 20220807
  6. METOCLOPRAMIDE HYDROCHLORIDE [Concomitant]
     Active Substance: METOCLOPRAMIDE HYDROCHLORIDE
     Indication: Prophylaxis of nausea and vomiting
     Dosage: 10 MILLIGRAM, ONCE
     Route: 042
     Dates: start: 20220807, end: 20220807
  7. ATROPINE [Concomitant]
     Active Substance: ATROPINE
     Dosage: 3 MILLIGRAM
     Dates: start: 20220807, end: 20220807
  8. ZINACEF [Concomitant]
     Active Substance: CEFUROXIME SODIUM
     Indication: Antibiotic therapy
     Dosage: 1.5 GRAM, ONCE
     Dates: start: 20220807, end: 20220807
  9. EPINEPHRINE [Concomitant]
     Active Substance: EPINEPHRINE
     Dosage: 10 MILLIGRAM, ONCE
     Dates: start: 20220807, end: 20220807
  10. EPINEPHRINE [Concomitant]
     Active Substance: EPINEPHRINE
     Dosage: 5 MILLIGRAM
     Dates: start: 20220807, end: 20220807
  11. ETOMIDATE [Concomitant]
     Active Substance: ETOMIDATE
     Dosage: 20 MILLIGRAM, ONCE
     Dates: start: 20220807, end: 20220807
  12. METAMIZOLE [Concomitant]
     Active Substance: METAMIZOLE
     Indication: Analgesic therapy
     Dosage: 2000 MILLIGRAM, ONCE
     Dates: start: 20220807, end: 20220807
  13. DEXACORT [DEXAMETHASONE] [Concomitant]
     Dosage: 20 MILLIGRAM, ONCE
     Dates: start: 20220807, end: 20220807
  14. ONDANSETRON [Concomitant]
     Active Substance: ONDANSETRON
     Dosage: 8 MILLIGRAM, ONCE
     Dates: start: 20220807, end: 20220807
  15. CALCIUM GLUCONATE [Concomitant]
     Active Substance: CALCIUM GLUCONATE
     Dosage: 100 MILLIGRAM
     Dates: start: 20220807, end: 20220807
  16. SUCCINYLCHOLINE [Concomitant]
     Active Substance: SUCCINYLCHOLINE
     Indication: Muscle relaxant therapy
     Dosage: 100 MILLIGRAM, ONCE
     Dates: start: 20220807, end: 20220807
  17. RINGER LACTATED [Concomitant]
     Dosage: 2000 MILLILITER
     Dates: start: 20220807, end: 20220807

REACTIONS (18)
  - Cardiac arrest [Fatal]
  - Aortic valve incompetence [Not Recovered/Not Resolved]
  - Lactic acidosis [Not Recovered/Not Resolved]
  - Vasoplegia syndrome [Not Recovered/Not Resolved]
  - Diaphragmatic injury [Not Recovered/Not Resolved]
  - Bradycardia [Not Recovered/Not Resolved]
  - Anaphylactic reaction [Not Recovered/Not Resolved]
  - Pleural effusion [Not Recovered/Not Resolved]
  - Metabolic disorder [Not Recovered/Not Resolved]
  - Rubber sensitivity [Not Recovered/Not Resolved]
  - Localised oedema [Not Recovered/Not Resolved]
  - Rhonchi [Not Recovered/Not Resolved]
  - Mydriasis [Not Recovered/Not Resolved]
  - Oxygen saturation decreased [Not Recovered/Not Resolved]
  - Cardiac contractility decreased [Not Recovered/Not Resolved]
  - Intra-abdominal pressure increased [Not Recovered/Not Resolved]
  - Heart rate increased [Not Recovered/Not Resolved]
  - Hypotension [Not Recovered/Not Resolved]

NARRATIVE: CASE EVENT DATE: 20220807
